FAERS Safety Report 8005761-0 (Version None)
Quarter: 2011Q4

REPORT INFORMATION
  Report Type: 
  Country: None (occurrence: None)
  Receive Date: 20111223
  Receipt Date: 20111219
  Transmission Date: 20120403
  Serious: Yes (Hospitalization)
  Sender: FDA-Public Use
  Company Number: PHHO2011DE020864

PATIENT
  Sex: Female
  Weight: 56 kg

DRUGS (3)
  1. INC424 [Suspect]
     Indication: MYELOFIBROSIS
     Dosage: 20 MG, BID
     Route: 048
     Dates: start: 20111026
  2. ACETYLSALICYLIC ACID SRT [Suspect]
     Indication: PAIN
     Dosage: 100 G, QD
     Route: 048
     Dates: start: 20110920, end: 20111209
  3. NADROPARIN [Suspect]
     Indication: THROMBOSIS PROPHYLAXIS
     Dosage: 60 MG, QD
     Route: 058
     Dates: start: 20111005, end: 20111209

REACTIONS (1)
  - EPISTAXIS [None]
